FAERS Safety Report 7937908-6 (Version None)
Quarter: 2011Q4

REPORT INFORMATION
  Report Type: 
  Country: None (occurrence: None)
  Receive Date: 20111123
  Receipt Date: 20111108
  Transmission Date: 20120403
  Serious: Yes (Life-Threatening, Hospitalization, Disabling)
  Sender: FDA-Public Use
  Company Number: GB-WATSON-2011-16252

PATIENT
  Sex: Male

DRUGS (1)
  1. TERBINAFINE HCL [Suspect]
     Indication: ONYCHOMYCOSIS
     Dosage: 250 MG, UNKNOWN
     Route: 048
     Dates: start: 20110602, end: 20110622

REACTIONS (4)
  - PANCREATIC NECROSIS [None]
  - PANCREATITIS CHRONIC [None]
  - HEPATITIS ACUTE [None]
  - PANCREATITIS ACUTE [None]
